FAERS Safety Report 7035447-0 (Version None)
Quarter: 2010Q4

REPORT INFORMATION
  Report Type: 
  Country: None (occurrence: None)
  Receive Date: 20101008
  Receipt Date: 20101001
  Transmission Date: 20110411
  Serious: Yes (Other)
  Sender: FDA-Public Use
  Company Number: BR-PFIZER INC-2010110232

PATIENT
  Age: 35 Year
  Sex: Female
  Weight: 53.5 kg

DRUGS (5)
  1. CHAMPIX [Suspect]
     Indication: TOBACCO ABUSE
     Dosage: 0.5 MG, 1X/DAY
     Route: 048
     Dates: start: 20100826, end: 20100101
  2. CHAMPIX [Suspect]
     Dosage: 0.5 MG, 2X/DAY, EVERY 12 HOURS
     Route: 048
     Dates: start: 20100101, end: 20100101
  3. CHAMPIX [Suspect]
     Dosage: 1 MG, 2X/DAY, EVERY 12 HOURS
     Route: 048
     Dates: start: 20100101
  4. ATROVENT [Concomitant]
     Indication: BRONCHITIS
     Dosage: UNK
  5. MOMETASONE FUROATE [Concomitant]
     Indication: BRONCHITIS
     Dosage: UNK

REACTIONS (12)
  - APPETITE DISORDER [None]
  - BLOOD PRESSURE INCREASED [None]
  - CRYING [None]
  - DIZZINESS [None]
  - DRY MOUTH [None]
  - HEADACHE [None]
  - IRRITABILITY [None]
  - MITRAL VALVE PROLAPSE [None]
  - NAUSEA [None]
  - NERVOUSNESS [None]
  - THIRST [None]
  - VENTRICULAR TACHYCARDIA [None]
